FAERS Safety Report 21671393 (Version 2)
Quarter: 2022Q4

REPORT INFORMATION
  Report Type: Other
  Country: US (occurrence: US)
  Receive Date: 20221202
  Receipt Date: 20221203
  Transmission Date: 20230112
  Serious: No
  Sender: FDA-Public Use
  Company Number: US-GBT-017026

PATIENT
  Sex: Female

DRUGS (1)
  1. OXBRYTA [Suspect]
     Active Substance: VOXELOTOR
     Indication: Sickle cell disease
     Route: 048
     Dates: start: 202206, end: 202207

REACTIONS (5)
  - Somnolence [Unknown]
  - Therapy cessation [Unknown]
  - Drug interaction [Unknown]
  - Fatigue [Recovering/Resolving]
  - Off label use [Unknown]
